FAERS Safety Report 9000312 (Version 1)
Quarter: 2012Q4

REPORT INFORMATION
  Report Type: Spontaneous
  Country: US (occurrence: None)
  Receive Date: 20121221
  Receipt Date: 20121221
  Transmission Date: 20130627
  Serious: Yes (Hospitalization, Other)
  Sender: FDA-Public Use
  Company Number: 2012-001844

PATIENT
  Age: 66 Year
  Sex: Female

DRUGS (22)
  1. ACTONEL (RISEDRONATE SODIUM) TABLET, 35MG [Suspect]
     Indication: OSTEOPOROSIS
     Route: 048
     Dates: start: 20040305, end: 201003
  2. ACTONEL (RISEDRONATE SODIUM) TABLET, 35MG [Suspect]
     Indication: OSTEOPENIA
     Route: 048
     Dates: start: 20040305, end: 201003
  3. ACTONEL (RISEDRONATE SODIUM) TABLET, 35MG [Suspect]
     Route: 048
     Dates: start: 20040305, end: 201003
  4. PLAQUENIL PHOSPHATE) /00072602/ (HYDROXYCHLOROQUINE PHOSPHATE) [Concomitant]
  5. ENBREL (ETANERCEPT) [Concomitant]
  6. ARAVA (LEFLUNOMIDE) [Concomitant]
  7. PREDNISONE (PREDNISONE) [Concomitant]
  8. METHOTREXATE (METHOTREXATE) [Concomitant]
  9. HUMIRA (ADALIMUMAB) [Concomitant]
  10. ZESTRIL (LISINOPRIL) [Concomitant]
  11. VIOXX (ROFECOXIB) [Concomitant]
  12. ALEVE (NAPROXEN SODIUM) [Concomitant]
  13. OMEPRAZOLE (OMEPRAZOLE) [Concomitant]
  14. PREVACID (LANSOPRAZOLE) [Concomitant]
  15. AMITRIPTYLINE (AMITRIPTYLINE) [Concomitant]
  16. DURAGESIC /00174601/ (FENTANYL) [Concomitant]
  17. LIDODERM (LIDOCAINE) [Concomitant]
  18. COLCHICINE (COLCHICINE) [Concomitant]
  19. LEUCOVORIN /00566701/ (FOLINIC ACID) [Concomitant]
  20. MULTIVITAMIN /00831701/ (VITAMINS NOS) [Concomitant]
  21. VITAMIN D /00318501/ (COLECALCIFEROL) [Concomitant]
  22. CALCIUM (CALCIUM) [Concomitant]

REACTIONS (10)
  - Femur fracture [None]
  - Fall [None]
  - Fracture displacement [None]
  - Femur fracture [None]
  - Pathological fracture [None]
  - Bone disorder [None]
  - Stress fracture [None]
  - Low turnover osteopathy [None]
  - Pain [None]
  - Osteogenesis imperfecta [None]
